FAERS Safety Report 9125275 (Version 1)
Quarter: 2013Q1

REPORT INFORMATION
  Report Type: Spontaneous
  Country: DK (occurrence: DE)
  Receive Date: 20130117
  Receipt Date: 20130117
  Transmission Date: 20140127
  Serious: Yes (Other)
  Sender: FDA-Public Use
  Company Number: DE-FRI-1000041705

PATIENT
  Sex: Female

DRUGS (2)
  1. CITALOPRAM [Suspect]
     Dosage: 20 MG
     Route: 048
     Dates: start: 200007
  2. CITALOPRAM [Suspect]
     Dosage: 10 MG
     Route: 048

REACTIONS (4)
  - Ventricular tachycardia [Recovered/Resolved]
  - Ventricular extrasystoles [Recovered/Resolved]
  - Sinus tachycardia [Recovered/Resolved]
  - Palpitations [Recovered/Resolved]
